FAERS Safety Report 7632196-2 (Version None)
Quarter: 2011Q3

REPORT INFORMATION
  Report Type: 
  Country: None (occurrence: None)
  Receive Date: 20110701
  Receipt Date: 20101222
  Transmission Date: 20111222
  Serious: Yes (Other)
  Sender: FDA-Public Use
  Company Number: 7033223

PATIENT
  Age: 28 Year
  Sex: Female

DRUGS (2)
  1. KLONOPIN [Concomitant]
  2. REBIF [Suspect]
     Indication: PRODUCT USED FOR UNKNOWN INDICATION
     Dosage: 44, 3 IN 1, SUBCUTANEOUS
     Route: 058
     Dates: start: 20080304

REACTIONS (7)
  - INFECTION [None]
  - STRESS [None]
  - DEPRESSION [None]
  - INSOMNIA [None]
  - ANKLE FRACTURE [None]
  - CONVULSION [None]
  - ANIMAL BITE [None]
